FAERS Safety Report 18397434 (Version 1)
Quarter: 2020Q4

REPORT INFORMATION
  Report Type: Spontaneous
  Country: US (occurrence: US)
  Receive Date: 20201017
  Receipt Date: 20201017
  Transmission Date: 20210114
  Serious: Yes (Other)
  Sender: FDA-Public Use
  Company Number: None

PATIENT
  Age: 63 Year
  Sex: Female
  Weight: 81.45 kg

DRUGS (1)
  1. RITUXAN [Suspect]
     Active Substance: RITUXIMAB
     Indication: ORAL LICHEN PLANUS
     Dosage: OTHER FREQUENCY:DAY 0 AND 15;?
     Route: 041

REACTIONS (4)
  - Paraesthesia oral [None]
  - Pharyngeal swelling [None]
  - Lip swelling [None]
  - Ear pruritus [None]

NARRATIVE: CASE EVENT DATE: 20201016
